FAERS Safety Report 20611430 (Version 2)
Quarter: 2022Q1

REPORT INFORMATION
  Report Type: Spontaneous
  Country: US (occurrence: US)
  Receive Date: 20220318
  Receipt Date: 20220328
  Transmission Date: 20220423
  Serious: Yes (Other)
  Sender: FDA-Public Use
  Company Number: US-GW PHARMA-202203USGW01301

PATIENT
  Age: 10 Year
  Sex: Female
  Weight: 40.1 kg

DRUGS (19)
  1. EPIDIOLEX [Suspect]
     Active Substance: CANNABIDIOL
     Indication: Lennox-Gastaut syndrome
     Dosage: UNK
     Route: 048
     Dates: start: 20190412
  2. EPIDIOLEX [Suspect]
     Active Substance: CANNABIDIOL
     Dosage: 14.96 MG/KG/DAY, 300 MILLIGRAM, BID, DOSE INCREASED
     Route: 048
     Dates: start: 20210527, end: 2021
  3. EPIDIOLEX [Suspect]
     Active Substance: CANNABIDIOL
     Dosage: 7.48 MG/KG/DAY, 150 MILLIGRAM, BID
     Route: 048
     Dates: start: 2021, end: 20210627
  4. EPIDIOLEX [Suspect]
     Active Substance: CANNABIDIOL
     Dosage: DOSE DECREASED TO 0.7 ML AND STOPPED
     Route: 048
     Dates: start: 20210628, end: 20210729
  5. EPIDIOLEX [Suspect]
     Active Substance: CANNABIDIOL
     Dosage: 4.99 MG/KG/DAY, 100 MILLIGRAM, BID
     Route: 048
     Dates: start: 20210907, end: 20211117
  6. EPIDIOLEX [Suspect]
     Active Substance: CANNABIDIOL
     Dosage: 9.97 MG/KG/DAY, 200 MILLIGRAM, BID
     Route: 048
     Dates: start: 20211118, end: 20220217
  7. VALPROIC ACID [Suspect]
     Active Substance: VALPROIC ACID
     Indication: Epilepsy
     Dosage: DECREASED FROM INITIAL DOSE
     Route: 065
     Dates: start: 20190701, end: 20200623
  8. VALPROIC ACID [Suspect]
     Active Substance: VALPROIC ACID
     Dosage: INCREASED DOSE BY 1 ML BID
     Route: 065
     Dates: start: 20200624
  9. VALPROIC ACID [Suspect]
     Active Substance: VALPROIC ACID
     Dosage: DOSE DECREASED
     Route: 065
     Dates: start: 20210527
  10. VALPROIC ACID [Suspect]
     Active Substance: VALPROIC ACID
     Dosage: DECREASED TO 1.5 ML AND WITHDRAWN ON UNKNOWN DATE
     Route: 065
     Dates: start: 20210830
  11. CATAPRES-TTS [Concomitant]
     Active Substance: CLONIDINE
     Indication: Product used for unknown indication
     Dosage: WEEKLY PATCH
     Route: 065
  12. KEPPRA [Concomitant]
     Active Substance: LEVETIRACETAM
     Indication: Epilepsy
     Dosage: 5 MILLILITER, BID
     Route: 065
  13. NAYZILAM [Concomitant]
     Active Substance: MIDAZOLAM
     Indication: Product used for unknown indication
     Dosage: UNK
     Route: 065
  14. OXCARBAZEPINE [Concomitant]
     Active Substance: OXCARBAZEPINE
     Indication: Product used for unknown indication
     Dosage: UNK
     Route: 065
  15. TRILEPTAL [Concomitant]
     Active Substance: OXCARBAZEPINE
     Indication: Epilepsy
     Dosage: 6 MILLILITER, BID
     Route: 065
  16. SYMPAZAN [Concomitant]
     Active Substance: CLOBAZAM
     Indication: Epilepsy
     Dosage: 5 MILLIGRAM, BID
     Route: 065
  17. ACETAMINOPHEN [Concomitant]
     Active Substance: ACETAMINOPHEN
     Indication: Product used for unknown indication
     Dosage: UNK
     Route: 065
  18. IBUPROFEN [Concomitant]
     Active Substance: IBUPROFEN
     Indication: Product used for unknown indication
     Dosage: UNK
     Route: 065
  19. ZONEGRAN [Concomitant]
     Active Substance: ZONISAMIDE
     Indication: Epilepsy
     Dosage: 200 MILLIGRAM, QD (EVERY NIGHT AT BEDTIME)
     Route: 065

REACTIONS (1)
  - Liver function test increased [Recovering/Resolving]

NARRATIVE: CASE EVENT DATE: 20190614
